FAERS Safety Report 5188314-1 (Version None)
Quarter: 2006Q4

REPORT INFORMATION
  Report Type: 
  Country: None (occurrence: None)
  Receive Date: 20061221
  Receipt Date: 20061215
  Transmission Date: 20070319
  Serious: Yes (Hospitalization)
  Sender: FDA-Public Use
  Company Number: ES-ROCHE-475242

PATIENT
  Age: 61 Year
  Sex: Male

DRUGS (2)
  1. MYCOPHENOLATE MOFETIL [Suspect]
     Route: 048
     Dates: start: 20061026
  2. FK506 [Suspect]
     Route: 048
     Dates: start: 20061026

REACTIONS (3)
  - HEPATIC FUNCTION ABNORMAL [None]
  - ISCHAEMIA [None]
  - REPERFUSION INJURY [None]
